FAERS Safety Report 13738884 (Version 1)
Quarter: 2017Q3

REPORT INFORMATION
  Report Type: Spontaneous
  Country: US (occurrence: US)
  Receive Date: 20170710
  Receipt Date: 20170710
  Transmission Date: 20171127
  Serious: Yes (Other)
  Sender: FDA-Public Use
  Company Number: US-SAOL THERAPEUTICS-2017SAO01021

PATIENT
  Sex: Female

DRUGS (7)
  1. BACLOFEN. [Suspect]
     Active Substance: BACLOFEN
     Dosage: 283 ?G, UNK
     Route: 037
     Dates: start: 201706
  2. BACLOFEN. [Suspect]
     Active Substance: BACLOFEN
     Dosage: 200 ?G, UNK
     Dates: start: 20170413
  3. BACLOFEN. [Suspect]
     Active Substance: BACLOFEN
     Dosage: 103 ?G, UNK
     Route: 037
     Dates: end: 20170426
  4. BACLOFEN. [Suspect]
     Active Substance: BACLOFEN
     Indication: MUSCLE SPASTICITY
     Dosage: 232.4 ?G, \DAY
     Route: 037
  5. BACLOFEN. [Suspect]
     Active Substance: BACLOFEN
     Indication: CEREBRAL PALSY
     Dosage: 953 ?G, UNK
     Route: 037
  6. BACLOFEN. [Suspect]
     Active Substance: BACLOFEN
     Dosage: 13 UNK, UNK
     Route: 037
  7. BACLOFEN. [Suspect]
     Active Substance: BACLOFEN
     Dosage: 104 ?G, UNK
     Route: 037
     Dates: end: 20170426

REACTIONS (7)
  - Malaise [Recovered/Resolved]
  - Device damage [Unknown]
  - Peripheral swelling [Unknown]
  - Vomiting [Recovered/Resolved]
  - Cerebrospinal fluid leakage [Unknown]
  - Musculoskeletal stiffness [Unknown]
  - Pain [Unknown]

NARRATIVE: CASE EVENT DATE: 201704
